FAERS Safety Report 9309062 (Version 2)
Quarter: 2013Q2

REPORT INFORMATION
  Report Type: Spontaneous
  Country: US (occurrence: US)
  Receive Date: 20130525
  Receipt Date: 20130619
  Transmission Date: 20140414
  Serious: No
  Sender: FDA-Public Use
  Company Number: US-009507513-1305USA013195

PATIENT
  Age: 33 Year
  Sex: Female
  Weight: 97.97 kg

DRUGS (1)
  1. NEXPLANON [Suspect]
     Dosage: UNK
     Dates: start: 20130516

REACTIONS (2)
  - Device difficult to use [Recovered/Resolved]
  - Product quality issue [Recovered/Resolved]
